FAERS Safety Report 16997074 (Version 1)
Quarter: 2019Q4

REPORT INFORMATION
  Report Type: Spontaneous
  Country: US (occurrence: US)
  Receive Date: 20190924
  Receipt Date: 20190924
  Transmission Date: 20200122
  Serious: Yes (Hospitalization)
  Sender: FDA-Public Use
  Company Number: None

PATIENT
  Age: 64 Year
  Sex: Female
  Weight: 68.7 kg

DRUGS (13)
  1. ONDANSETRON [Concomitant]
     Active Substance: ONDANSETRON
  2. ALPRAZOLAM. [Concomitant]
     Active Substance: ALPRAZOLAM
  3. GABAPENTIN. [Concomitant]
     Active Substance: GABAPENTIN
  4. LEVETIRACETAM. [Concomitant]
     Active Substance: LEVETIRACETAM
  5. LISINOPRIL. [Concomitant]
     Active Substance: LISINOPRIL
  6. ASPIRIN. [Concomitant]
     Active Substance: ASPIRIN
  7. FLUTICASONE. [Concomitant]
     Active Substance: FLUTICASONE
  8. APIXABAN [Suspect]
     Active Substance: APIXABAN
     Indication: DEEP VEIN THROMBOSIS
     Dosage: 2.5 OR 5.0 MG; TWICE DAILY, ORAL?
     Route: 048
     Dates: start: 20181227
  9. LANSOPRAZOLE. [Concomitant]
     Active Substance: LANSOPRAZOLE
  10. ROSUVASTATIN. [Concomitant]
     Active Substance: ROSUVASTATIN
  11. SERTRALINE [Concomitant]
     Active Substance: SERTRALINE HYDROCHLORIDE
  12. BEVACIZUMAB. [Concomitant]
     Active Substance: BEVACIZUMAB
  13. LUBIPROSTONE [Concomitant]
     Active Substance: LUBIPROSTONE

REACTIONS (7)
  - Abdominal pain [None]
  - Nausea [None]
  - Hypoalbuminaemia [None]
  - Nodule [None]
  - Weight decreased [None]
  - Anaemia [None]
  - Aspartate aminotransferase increased [None]

NARRATIVE: CASE EVENT DATE: 20190916
